FAERS Safety Report 23278356 (Version 2)
Quarter: 2023Q4

REPORT INFORMATION
  Report Type: Spontaneous
  Country: CN (occurrence: CN)
  Receive Date: 20231208
  Receipt Date: 20231214
  Transmission Date: 20240110
  Serious: Yes (Hospitalization)
  Sender: FDA-Public Use
  Company Number: CN-002147023-NVSC2023CN256216

PATIENT
  Age: 28 Year
  Sex: Male

DRUGS (1)
  1. DEXAMETHASONE\TOBRAMYCIN [Suspect]
     Active Substance: DEXAMETHASONE\TOBRAMYCIN
     Indication: Infection prophylaxis
     Dosage: 1 DRP, QID (FOUR TIMES A DAY ONE DROP AT A TIME EYE DROPS)
     Route: 047
     Dates: start: 20231024, end: 20231110

REACTIONS (3)
  - Intraocular pressure increased [Recovered/Resolved]
  - Eye pain [Recovered/Resolved]
  - Blood pressure increased [Unknown]

NARRATIVE: CASE EVENT DATE: 20231110
